FAERS Safety Report 15820614 (Version 1)
Quarter: 2019Q1

REPORT INFORMATION
  Report Type: Spontaneous
  Country: US (occurrence: US)
  Receive Date: 20190114
  Receipt Date: 20190114
  Transmission Date: 20190417
  Serious: No
  Sender: FDA-Public Use
  Company Number: US-SA-2019SA008226

PATIENT
  Age: 71 Year
  Sex: Female

DRUGS (24)
  1. CEFADROXIL. [Concomitant]
     Active Substance: CEFADROXIL
  2. MUPIROCIN. [Concomitant]
     Active Substance: MUPIROCIN
  3. MYRBETRIQ [Concomitant]
     Active Substance: MIRABEGRON
  4. PANTOPRAZOLE SODIUM. [Concomitant]
     Active Substance: PANTOPRAZOLE SODIUM
  5. LEVAQUIN [Concomitant]
     Active Substance: LEVOFLOXACIN
  6. PROVENTIL HFA [SALBUTAMOL SULFATE] [Concomitant]
  7. RESTASIS [Concomitant]
     Active Substance: CYCLOSPORINE
  8. PROMETHAZINE - CODEINE [CITRIC ACID;CODEINE PHOSPHATE;PROMETHAZINE HYD [Concomitant]
  9. ADVAIR HFA [Concomitant]
     Active Substance: FLUTICASONE PROPIONATE\SALMETEROL XINAFOATE
  10. ASTEPRO [Concomitant]
     Active Substance: AZELASTINE HYDROCHLORIDE
  11. NASONEX [Concomitant]
     Active Substance: MOMETASONE FUROATE
  12. LEVOFLOXACIN. [Concomitant]
     Active Substance: LEVOFLOXACIN
  13. HYDROCODONE/ACETAMINOPHEN [Concomitant]
     Active Substance: ACETAMINOPHEN\HYDROCODONE
  14. DIAZEPAM. [Concomitant]
     Active Substance: DIAZEPAM
  15. MONTELUKAST [Concomitant]
     Active Substance: MONTELUKAST SODIUM
  16. ACYCLOVIR [ACICLOVIR] [Concomitant]
     Active Substance: ACYCLOVIR
  17. PRALUENT [Suspect]
     Active Substance: ALIROCUMAB
     Indication: RHEUMATOID ARTHRITIS
     Dosage: 75 MG, QOW
     Route: 058
  18. PROAIR HFA [Concomitant]
     Active Substance: ALBUTEROL SULFATE
  19. BENZONATATE. [Concomitant]
     Active Substance: BENZONATATE
  20. CEPHALEXIN [CEFALEXIN MONOHYDRATE] [Concomitant]
  21. LORAZEPAM. [Concomitant]
     Active Substance: LORAZEPAM
  22. AZITHROMYCIN ANHYDROUS. [Concomitant]
     Active Substance: AZITHROMYCIN ANHYDROUS
  23. VALSARTAN/HYDROCHLOROTHIAZIDE [Concomitant]
     Active Substance: HYDROCHLOROTHIAZIDE\VALSARTAN
  24. PREDNISONE. [Concomitant]
     Active Substance: PREDNISONE

REACTIONS (1)
  - Product dose omission [Unknown]

NARRATIVE: CASE EVENT DATE: 20181212
